FAERS Safety Report 20581697 (Version 5)
Quarter: 2022Q2

REPORT INFORMATION
  Report Type: Report from Study
  Country: US (occurrence: None)
  Receive Date: 20220311
  Receipt Date: 20220615
  Transmission Date: 20220721
  Serious: Yes (Hospitalization)
  Sender: FDA-Public Use
  Company Number: US-Eisai Medical Research-EC-2022-110275

PATIENT
  Age: 52 Year
  Sex: Male
  Weight: 118.8 kg

DRUGS (14)
  1. LENVATINIB [Suspect]
     Active Substance: LENVATINIB
     Indication: Clear cell renal cell carcinoma
     Route: 048
     Dates: start: 20220113, end: 20220206
  2. LENVATINIB [Suspect]
     Active Substance: LENVATINIB
     Route: 048
     Dates: start: 20220215, end: 20220216
  3. LENVATINIB [Suspect]
     Active Substance: LENVATINIB
     Dosage: STARTING DOSE AT 14 MG, FLUCTUATED DOSAGE
     Route: 048
     Dates: start: 20220310
  4. QUAVONLIMAB [Suspect]
     Active Substance: QUAVONLIMAB
     Indication: Clear cell renal cell carcinoma
     Dosage: MK-1308A 425 MG (QUAVONLIMAB (MK-1308) 25MG + PEMBROLIZUMAB (MK-3475) 400MG
     Route: 041
     Dates: start: 20220113, end: 20220113
  5. PEMBROLIZUMAB [Suspect]
     Active Substance: PEMBROLIZUMAB
     Dosage: MK-1308A 425 MG (QUAVONLIMAB (MK-1308) 25MG + PEMBROLIZUMAB (MK-3475) 400MG
     Route: 041
     Dates: start: 20220421
  6. DEXILANT [Concomitant]
     Active Substance: DEXLANSOPRAZOLE
     Dates: start: 20190101
  7. AMLODIPINE [Concomitant]
     Active Substance: AMLODIPINE BESYLATE
     Dates: start: 20200701
  8. PRINIVIL [Concomitant]
     Active Substance: LISINOPRIL
     Dates: start: 20200701
  9. LINACLOTIDE [Concomitant]
     Active Substance: LINACLOTIDE
     Dates: start: 20210701
  10. ACETAMINOPHEN [Concomitant]
     Active Substance: ACETAMINOPHEN
     Dates: start: 20211124
  11. DICLOFENAC [Concomitant]
     Active Substance: DICLOFENAC
     Dates: start: 20220122
  12. DICLOFENAC SODIUM [Concomitant]
     Active Substance: DICLOFENAC SODIUM
     Dates: start: 20220122
  13. TROLAMINE SALICYLATE [Concomitant]
     Active Substance: TROLAMINE SALICYLATE
     Dates: start: 20220205
  14. PREDNISONE [Concomitant]
     Active Substance: PREDNISONE
     Dates: start: 20220216, end: 20220321

REACTIONS (1)
  - Atrial fibrillation [Recovered/Resolved]

NARRATIVE: CASE EVENT DATE: 20220304
